FAERS Safety Report 9608517 (Version 2)
Quarter: 2013Q4

REPORT INFORMATION
  Report Type: Spontaneous
  Country: JP (occurrence: JP)
  Receive Date: 20131009
  Receipt Date: 20131030
  Transmission Date: 20140711
  Serious: Yes (Hospitalization)
  Sender: FDA-Public Use
  Company Number: JP-COVIDIEN/TYCO HEALTHCARE/MALLINCKRODT-T201304510

PATIENT
  Age: 52 Year
  Sex: Female
  Weight: 57 kg

DRUGS (7)
  1. OPTIRAY [Suspect]
     Indication: COMPUTERISED TOMOGRAM
     Dosage: UNK, SINGLE
     Route: 042
     Dates: start: 20130718, end: 20130718
  2. CAMOSTAT MESILATE [Concomitant]
     Indication: PANCREATITIS
     Dosage: 200 MG, TID
     Route: 048
     Dates: start: 20130526, end: 20130821
  3. RABEPRAZOLE SODIUM [Concomitant]
     Indication: PANCREATITIS
     Dosage: 10 MG, QD
     Route: 048
     Dates: start: 20130530, end: 20130821
  4. DOXAZOSIN MESILATE [Concomitant]
     Indication: HYPERTENSION
     Dosage: 2 MG, QD
     Route: 048
     Dates: start: 20130519, end: 20130718
  5. OLMESARTAN MEDOXOMIL [Concomitant]
     Indication: HYPERTENSION
     Dosage: 20 MG, QD
     Route: 048
     Dates: start: 20130518, end: 20130718
  6. AMLODIPINE BESILATE [Concomitant]
     Indication: HYPERTENSION
     Dosage: 10 MG, QD
     Route: 048
     Dates: start: 20130517
  7. BISOPROLOL FUMERATE [Concomitant]
     Indication: HYPERTENSION
     Dosage: 1.25 MG, BID
     Route: 048
     Dates: start: 20130515

REACTIONS (1)
  - Anaphylactic shock [Recovered/Resolved]
